FAERS Safety Report 12167960 (Version 3)
Quarter: 2016Q2

REPORT INFORMATION
  Report Type: Spontaneous
  Country: US (occurrence: US)
  Receive Date: 20160310
  Receipt Date: 20160606
  Transmission Date: 20160815
  Serious: Yes (Other)
  Sender: FDA-Public Use
  Company Number: US-TEVA-641295USA

PATIENT
  Age: 49 Year
  Sex: Female

DRUGS (1)
  1. ZECUITY [Suspect]
     Active Substance: SUMATRIPTAN SUCCINATE
     Indication: MIGRAINE
     Dosage: 6.5 MG / 4 HOURS
     Route: 062
     Dates: start: 20160213, end: 20160213

REACTIONS (8)
  - Application site vesicles [Recovered/Resolved]
  - Application site discolouration [Recovering/Resolving]
  - Application site paraesthesia [Unknown]
  - Application site burn [Recovered/Resolved with Sequelae]
  - Application site erythema [Recovering/Resolving]
  - Application site dryness [Recovering/Resolving]
  - Application site pain [Recovering/Resolving]
  - Application site pruritus [Unknown]

NARRATIVE: CASE EVENT DATE: 20160213
